FAERS Safety Report 9034669 (Version 2)
Quarter: 2013Q1

REPORT INFORMATION
  Report Type: Spontaneous
  Country: IT (occurrence: None)
  Receive Date: 20130115
  Receipt Date: 20130124
  Transmission Date: 20140127
  Serious: Yes (Death, Other)
  Sender: FDA-Public Use
  Company Number: 2013AP000012

PATIENT
  Age: 23 Year
  Sex: Male

DRUGS (6)
  1. CLARITHROMYCIN [Suspect]
     Indication: SCHIZOAFFECTIVE DISORDER
     Dates: start: 201106
  2. AMISULPRIDE [Suspect]
  3. FLUPHENAZINE [Suspect]
  4. LITHIUM [Suspect]
  5. ORPHENADRINE [Suspect]
  6. HEPATITIS B VACCINE (HEPATITIS B VACCINE) [Concomitant]

REACTIONS (11)
  - Hepatitis fulminant [None]
  - Hypertransaminasaemia [None]
  - Diarrhoea [None]
  - Vomiting [None]
  - Epistaxis [None]
  - Nasal septum disorder [None]
  - Dyspnoea [None]
  - Subarachnoid haemorrhage [None]
  - Respiratory disorder [None]
  - Pyrexia [None]
  - Liver injury [None]
